FAERS Safety Report 4331479-1 (Version None)
Quarter: 2004Q1

REPORT INFORMATION
  Report Type: 
  Country: None (occurrence: None)
  Receive Date: 20040329
  Receipt Date: 20040318
  Transmission Date: 20041129
  Serious: Yes (Hospitalization)
  Sender: FDA-Public Use
  Company Number: US069980

PATIENT

DRUGS (2)
  1. NEULASTA [Suspect]
  2. NEUPOGEN [Suspect]

REACTIONS (1)
  - FEBRILE NEUTROPENIA [None]
